FAERS Safety Report 8960214 (Version 4)
Quarter: 2013Q2

REPORT INFORMATION
  Report Type: Spontaneous
  Country: DE (occurrence: DE)
  Receive Date: 20121212
  Receipt Date: 20130508
  Transmission Date: 20140414
  Serious: Yes (Other)
  Sender: FDA-Public Use
  Company Number: DE-PFIZER INC-2012254494

PATIENT
  Age: 74 Year
  Sex: Male
  Weight: 76.7 kg

DRUGS (4)
  1. SUTENT [Suspect]
     Indication: RENAL CELL CARCINOMA
     Dosage: 50 MG, 1X/DAY
     Route: 048
     Dates: start: 20120515
  2. AMLODIPINE [Concomitant]
     Dosage: 10 MG, 1X/DAY (1-0-0)
  3. HYDROCHLOROTHIAZID [Concomitant]
     Dosage: 25 MG, 1X/DAY (1-0-0)
  4. RAMIPRIL [Concomitant]
     Dosage: 5 MG, (0.5 - 0 - 0.5)

REACTIONS (6)
  - Blood pressure fluctuation [Recovered/Resolved]
  - Dysgeusia [Unknown]
  - Pruritus [Unknown]
  - Diarrhoea [Unknown]
  - Fatigue [Not Recovered/Not Resolved]
  - Disturbance in attention [Not Recovered/Not Resolved]
